FAERS Safety Report 8574303-3 (Version None)
Quarter: 2012Q3

REPORT INFORMATION
  Report Type: 
  Country: None (occurrence: None)
  Receive Date: 20120806
  Receipt Date: 20120726
  Transmission Date: 20120928
  Serious: Yes (Hospitalization, Disabling, Other)
  Sender: FDA-Public Use
  Company Number: US-009507513-1108USA02082

PATIENT

DRUGS (6)
  1. NORVASC [Concomitant]
     Dosage: 5 MG, QD
  2. CALCIUM (UNSPECIFIED) [Concomitant]
  3. NORVASC [Concomitant]
     Dosage: 10 MG, QD
  4. FOSAMAX [Suspect]
     Indication: OSTEOPOROSIS
     Dosage: 70 MG, QW
     Route: 048
     Dates: start: 20020402, end: 20100430
  5. FLUTICASONE PROPIONATE [Concomitant]
  6. COMBIVENT [Concomitant]

REACTIONS (82)
  - FEMUR FRACTURE [None]
  - OSTEOPENIA [None]
  - FALL [None]
  - HYPOTENSION [None]
  - MOTOR NEURONE DISEASE [None]
  - SLEEP APNOEA SYNDROME [None]
  - MIGRAINE [None]
  - NIGHT SWEATS [None]
  - ABDOMINAL PAIN [None]
  - STRESS FRACTURE [None]
  - PERONEAL NERVE PALSY [None]
  - ANXIETY [None]
  - CARDIOVASCULAR DISORDER [None]
  - URINARY TRACT INFECTION [None]
  - DEPRESSION [None]
  - SNORING [None]
  - FATIGUE [None]
  - OROPHARYNGEAL PAIN [None]
  - INCREASED TENDENCY TO BRUISE [None]
  - PARAESTHESIA [None]
  - GASTROOESOPHAGEAL REFLUX DISEASE [None]
  - TIBIA FRACTURE [None]
  - CALCIUM DEFICIENCY [None]
  - HYPERTHYROIDISM [None]
  - RADICULOPATHY [None]
  - NERVOUSNESS [None]
  - ARTHRITIS [None]
  - COAGULATION FACTOR DEFICIENCY [None]
  - WEIGHT DECREASED [None]
  - TINNITUS [None]
  - KNEE OPERATION [None]
  - ANAEMIA [None]
  - LIVER FUNCTION TEST ABNORMAL [None]
  - MUSCLE DISORDER [None]
  - BURSITIS [None]
  - DISTURBANCE IN ATTENTION [None]
  - HYPOAESTHESIA [None]
  - MYALGIA [None]
  - PRURITUS [None]
  - APPENDICECTOMY [None]
  - AMYOTROPHIC LATERAL SCLEROSIS [None]
  - LOW TURNOVER OSTEOPATHY [None]
  - VITAMIN D DEFICIENCY [None]
  - OSTEOARTHRITIS [None]
  - PERIPHERAL SENSORY NEUROPATHY [None]
  - INTERVERTEBRAL DISC PROTRUSION [None]
  - LIVER DISORDER [None]
  - LIGAMENT SPRAIN [None]
  - ACUTE SINUSITIS [None]
  - SPINAL OSTEOARTHRITIS [None]
  - PAIN IN EXTREMITY [None]
  - DRUG INEFFECTIVE [None]
  - GASTRIC DISORDER [None]
  - MOBILITY DECREASED [None]
  - PERIPHERAL NERVE PARESIS [None]
  - TREMOR [None]
  - OESOPHAGITIS [None]
  - BACK PAIN [None]
  - ARTHRALGIA [None]
  - CHOLECYSTECTOMY [None]
  - OSTEOPOROSIS [None]
  - NEUROPATHY PERIPHERAL [None]
  - LIMB INJURY [None]
  - THYROID NEOPLASM [None]
  - VARICES OESOPHAGEAL [None]
  - OCCULT BLOOD [None]
  - POOR QUALITY SLEEP [None]
  - POST-TRAUMATIC HEADACHE [None]
  - ANGINA PECTORIS [None]
  - EXTRASYSTOLES [None]
  - MUSCULOSKELETAL DISCOMFORT [None]
  - HEADACHE [None]
  - TONSILLECTOMY [None]
  - MYOCARDIAL INFARCTION [None]
  - CARPAL TUNNEL SYNDROME [None]
  - BARRETT'S OESOPHAGUS [None]
  - RADICULAR PAIN [None]
  - JOINT EFFUSION [None]
  - CONTUSION [None]
  - HEAD INJURY [None]
  - PYREXIA [None]
  - DYSPHAGIA [None]
